FAERS Safety Report 22946213 (Version 5)
Quarter: 2023Q4

REPORT INFORMATION
  Report Type: Report from Study
  Country: IL (occurrence: IL)
  Receive Date: 20230915
  Receipt Date: 20231011
  Transmission Date: 20240109
  Serious: Yes (Hospitalization, Other)
  Sender: FDA-Public Use
  Company Number: IL-BAXTER-2023BAX030982

PATIENT
  Age: 68 Year
  Sex: Female
  Weight: 65 kg

DRUGS (21)
  1. CYCLOPHOSPHAMIDE [Suspect]
     Active Substance: CYCLOPHOSPHAMIDE
     Indication: Non-Hodgkin^s lymphoma
     Dosage: 930 MG, EVERY 3 WEEKS
     Route: 042
     Dates: start: 20230625, end: 20230827
  2. CYCLOPHOSPHAMIDE [Suspect]
     Active Substance: CYCLOPHOSPHAMIDE
     Dosage: 900 MG, EVERY 3 WEEKS
     Route: 042
     Dates: start: 20230918
  3. EPCORITAMAB [Suspect]
     Active Substance: EPCORITAMAB
     Indication: Non-Hodgkin^s lymphoma
     Dosage: 48 MG C1 (STEP-UP) AND CYCLES 2 - 4 (WEEKLY) PER PROTOCOL, EVERY 1 WEEK
     Route: 058
     Dates: start: 20230625, end: 20230827
  4. EPCORITAMAB [Suspect]
     Active Substance: EPCORITAMAB
     Dosage: 48 MG C5-8 (EVERY 3 WEEKS) PER PROTOCOL, EVERY 3 WEEKS
     Route: 058
     Dates: start: 20230918
  5. RITUXIMAB [Suspect]
     Active Substance: RITUXIMAB
     Indication: Non-Hodgkin^s lymphoma
     Dosage: 619 MG, EVERY 3 WEEKS
     Route: 042
     Dates: start: 20230625, end: 20230827
  6. RITUXIMAB [Suspect]
     Active Substance: RITUXIMAB
     Dosage: 603 MG, EVERY 3 WEEKS
     Route: 042
     Dates: start: 20230918
  7. PREDNISONE [Suspect]
     Active Substance: PREDNISONE
     Indication: Non-Hodgkin^s lymphoma
     Dosage: 100 MG D1-5, C1-6, EVERY 1 DAY
     Route: 048
     Dates: start: 20230625
  8. POLATUZUMAB VEDOTIN [Suspect]
     Active Substance: POLATUZUMAB VEDOTIN
     Indication: Non-Hodgkin^s lymphoma
     Dosage: 91 MG, EVERY 3 WEEKS
     Route: 042
     Dates: start: 20230625, end: 20230827
  9. POLATUZUMAB VEDOTIN [Suspect]
     Active Substance: POLATUZUMAB VEDOTIN
     Dosage: 87 MG, EVERY 3 WEEKS
     Route: 042
     Dates: start: 20230918
  10. DOXORUBICIN [Suspect]
     Active Substance: DOXORUBICIN
     Indication: Non-Hodgkin^s lymphoma
     Dosage: 62 MG, EVERY 3 WEEKS
     Route: 042
     Dates: start: 20230625, end: 20230827
  11. DOXORUBICIN [Suspect]
     Active Substance: DOXORUBICIN
     Dosage: 60 MG, EVERY 3 WEEKS
     Route: 042
     Dates: start: 20230918
  12. POTASSIUM CHLORIDE [Concomitant]
     Active Substance: POTASSIUM CHLORIDE
     Indication: Hypokalaemia
     Dosage: 600 MG, 2/DAYS
     Route: 065
     Dates: start: 20230731
  13. LOPERAMIDE HYDROCHLORIDE [Concomitant]
     Active Substance: LOPERAMIDE HYDROCHLORIDE
     Indication: Diarrhoea
     Dosage: 4 MG, AS NECESSARY
     Route: 065
     Dates: start: 20230801
  14. ALLOPURINOL [Concomitant]
     Active Substance: ALLOPURINOL
     Indication: Prophylaxis
     Dosage: 300 MG, EVERY 1 DAYS
     Route: 065
     Dates: start: 20230625
  15. JARDIANCE [Concomitant]
     Active Substance: EMPAGLIFLOZIN
     Indication: Diabetes mellitus
     Dosage: 10 MG, EVERY 1 DAYS, START DATE: 2008
     Route: 065
  16. LEVOTHYROXINE [Concomitant]
     Active Substance: LEVOTHYROXINE
     Indication: Hypothyroidism
     Dosage: 150 UG, 4/WEEKS, SINCE 2008
     Route: 065
  17. LEVOTHYROXINE [Concomitant]
     Active Substance: LEVOTHYROXINE
     Dosage: 100 UG, 3/WEEKS, SINCE 2008
     Route: 065
  18. METFORMIN HYDROCHLORIDE [Concomitant]
     Active Substance: METFORMIN HYDROCHLORIDE
     Indication: Diabetes mellitus
     Dosage: 850 MG, EVERY 1 DAYS, START DATE: 2008
     Route: 065
  19. EXFORGE [Concomitant]
     Active Substance: AMLODIPINE BESYLATE\VALSARTAN
     Indication: Hypertension
     Dosage: 80/5 MG, EVERY 1 DAYS
     Route: 065
     Dates: start: 20230626
  20. MAGNOX [Concomitant]
     Indication: Hypomagnesaemia
     Dosage: 520 MG, 2 /DAYS
     Route: 065
     Dates: start: 20230731
  21. CALCIUM [Concomitant]
     Active Substance: CALCIUM
     Indication: Osteoporosis
     Dosage: 600 MG, AS NECESSARY, START DATE: JAN-2023
     Route: 065

REACTIONS (1)
  - Febrile neutropenia [Recovered/Resolved]

NARRATIVE: CASE EVENT DATE: 20230902
